FAERS Safety Report 16470752 (Version 1)
Quarter: 2019Q2

REPORT INFORMATION
  Report Type: Spontaneous
  Country: CN (occurrence: CN)
  Receive Date: 20190624
  Receipt Date: 20190624
  Transmission Date: 20190711
  Serious: Yes (Other)
  Sender: FDA-Public Use
  Company Number: CN-JNJFOC-20190618588

PATIENT
  Age: 68 Year
  Weight: 65 kg

DRUGS (1)
  1. XARELTO [Suspect]
     Active Substance: RIVAROXABAN
     Indication: THROMBOSIS
     Route: 048

REACTIONS (5)
  - Off label use [Not Recovered/Not Resolved]
  - Thrombosis [Not Recovered/Not Resolved]
  - Labelled drug-drug interaction medication error [Unknown]
  - Epistaxis [Unknown]
  - Contraindicated product administered [Unknown]
